FAERS Safety Report 9527758 (Version 1)
Quarter: 2013Q1

REPORT INFORMATION
  Report Type: Spontaneous
  Country: US (occurrence: None)
  Receive Date: 20130314
  Receipt Date: 20130314
  Transmission Date: 20140127
  Serious: Yes (Other)
  Sender: FDA-Public Use
  Company Number: 1211USA007733

PATIENT
  Age: 55 Year
  Sex: Female

DRUGS (4)
  1. VICTRELIS [Suspect]
     Indication: HEPATITIS C
     Dosage: 800 MG, TID, ORAL
     Route: 048
     Dates: start: 201207, end: 2012
  2. PEGASYS [Suspect]
     Indication: HEPATITIS C
  3. RIBAPAK (RIBAVIRIN) [Suspect]
     Indication: HEPATITIS C
  4. LOTREL (AMLODIPINE BESYLATE, BENAZEPRIL HYDROCHLORIDE) [Concomitant]

REACTIONS (3)
  - Hypersomnia [None]
  - Pruritus [None]
  - Fatigue [None]
